FAERS Safety Report 23149060 (Version 1)
Quarter: 2023Q4

REPORT INFORMATION
  Report Type: Spontaneous
  Country: US (occurrence: None)
  Receive Date: 20231103
  Receipt Date: 20231103
  Transmission Date: 20240110
  Serious: Yes (Life-Threatening, Other)
  Sender: FDA-Public Use
  Company Number: None

PATIENT
  Age: 39 Year
  Sex: Male
  Weight: 81 kg

DRUGS (5)
  1. FLUOXETINE [Suspect]
     Active Substance: FLUOXETINE HYDROCHLORIDE
     Indication: Anxiety
     Dosage: OTHER QUANTITY : 1 TABLET(S);?
     Route: 048
     Dates: start: 20230930, end: 20231004
  2. FLUOXETINE [Suspect]
     Active Substance: FLUOXETINE HYDROCHLORIDE
     Indication: Panic disorder
  3. FLUOXETINE [Suspect]
     Active Substance: FLUOXETINE HYDROCHLORIDE
     Indication: Post-traumatic stress disorder
  4. FLUOXETINE [Suspect]
     Active Substance: FLUOXETINE HYDROCHLORIDE
     Indication: Affective disorder
  5. CLONAZEPAM [Concomitant]
     Active Substance: CLONAZEPAM

REACTIONS (14)
  - Hallucination, visual [None]
  - Compulsions [None]
  - COVID-19 [None]
  - Confusional state [None]
  - Feeling drunk [None]
  - Dizziness [None]
  - Vertigo [None]
  - Tic [None]
  - Muscle spasms [None]
  - Homicidal ideation [None]
  - Mood swings [None]
  - Psychomotor hyperactivity [None]
  - Aggression [None]
  - Violence-related symptom [None]

NARRATIVE: CASE EVENT DATE: 20231003
